FAERS Safety Report 11131116 (Version 3)
Quarter: 2016Q3

REPORT INFORMATION
  Report Type: Spontaneous
  Country: JP (occurrence: JP)
  Receive Date: 20150522
  Receipt Date: 20160705
  Transmission Date: 20161109
  Serious: Yes (Other)
  Sender: FDA-Public Use
  Company Number: JP-ROCHE-1582005

PATIENT
  Age: 36 Year
  Sex: Female

DRUGS (23)
  1. MYSLEE [Concomitant]
     Active Substance: ZOLPIDEM TARTRATE
  2. CLARITIN [Concomitant]
     Active Substance: LORATADINE
     Route: 048
  3. ALLERMIST [Concomitant]
     Active Substance: FLUTICASONE FUROATE
  4. PREDONINE [Concomitant]
     Active Substance: PREDNISOLONE\PREDNISOLONE ACETATE\PREDNISOLONE SODIUM SUCCINATE
     Route: 065
     Dates: start: 201312
  5. NEXIUM HP7 [Concomitant]
     Active Substance: AMOXICILLIN\CLARITHROMYCIN\ESOMEPRAZOLE
     Dosage: NEXIUM 1-2-3
     Route: 065
  6. SPIRIVA [Concomitant]
     Active Substance: TIOTROPIUM BROMIDE MONOHYDRATE
  7. JZOLOFT [Concomitant]
     Active Substance: SERTRALINE HYDROCHLORIDE
  8. SINGULAIR [Concomitant]
     Active Substance: MONTELUKAST SODIUM
     Route: 048
  9. SYMBICORT [Concomitant]
     Active Substance: BUDESONIDE\FORMOTEROL FUMARATE DIHYDRATE
  10. XOLAIR [Suspect]
     Active Substance: OMALIZUMAB
     Indication: ASTHMA
     Route: 058
     Dates: start: 20150515
  11. MEPTIN [Concomitant]
     Active Substance: PROCATEROL HYDROCHLORIDE
  12. SUCRALFATE. [Concomitant]
     Active Substance: SUCRALFATE
  13. MYONAL (JAPAN) [Concomitant]
     Active Substance: EPERISONE HYDROCHLORIDE
  14. ROHYPNOL [Concomitant]
     Active Substance: FLUNITRAZEPAM
     Route: 065
  15. FLUTIFORM [Concomitant]
     Active Substance: FLUTICASONE PROPIONATE\FORMOTEROL FUMARATE
     Route: 055
  16. OLOPATADINE [Concomitant]
     Active Substance: OLOPATADINE
  17. PREDONINE [Concomitant]
     Active Substance: PREDNISOLONE\PREDNISOLONE ACETATE\PREDNISOLONE SODIUM SUCCINATE
     Route: 065
     Dates: start: 201312
  18. MUCOSTA [Concomitant]
     Active Substance: REBAMIPIDE
  19. GASTER [Concomitant]
     Active Substance: FAMOTIDINE
  20. ATARAX-P [Concomitant]
     Active Substance: HYDROXYZINE HYDROCHLORIDE
     Route: 065
     Dates: start: 20160608
  21. ONON [Concomitant]
     Active Substance: PRANLUKAST
  22. CARBOCISTEINE [Concomitant]
     Active Substance: CARBOCYSTEINE
  23. SOLANAX [Concomitant]
     Active Substance: ALPRAZOLAM

REACTIONS (3)
  - Anaphylactoid reaction [Recovered/Resolved]
  - Hypoaesthesia [Recovered/Resolved]
  - Injection site swelling [Unknown]

NARRATIVE: CASE EVENT DATE: 20150515
